FAERS Safety Report 19827056 (Version 1)
Quarter: 2021Q3

REPORT INFORMATION
  Report Type: Spontaneous
  Country: US (occurrence: US)
  Receive Date: 20210914
  Receipt Date: 20210914
  Transmission Date: 20211014
  Serious: Yes (Death, Life-Threatening, Hospitalization)
  Sender: FDA-Public Use
  Company Number: US-STRIDES ARCOLAB LIMITED-2020SP012475

PATIENT
  Age: 57 Year
  Sex: Female

DRUGS (5)
  1. TACROLIMUS. [Suspect]
     Active Substance: TACROLIMUS
     Indication: LUNG TRANSPLANT
     Dosage: 1.5 MILLIGRAM, BID
     Route: 065
     Dates: start: 2005
  2. SOLU?MEDROL [Suspect]
     Active Substance: METHYLPREDNISOLONE SODIUM SUCCINATE
     Indication: TRANSPLANT REJECTION
     Dosage: 10 MILLIGRAM/KILOGRAM PER DAY
     Route: 042
     Dates: start: 2007
  3. PREDNISOLONE. [Suspect]
     Active Substance: PREDNISOLONE
     Indication: LUNG TRANSPLANT
     Dosage: 10 MILLIGRAM, DAILY
     Route: 065
     Dates: start: 2005
  4. RITUXIMAB. [Suspect]
     Active Substance: RITUXIMAB
     Indication: TRANSPLANT REJECTION
     Dosage: 375 MILLIGRAM/SQ. METER PER DAY
     Route: 042
     Dates: start: 20070412
  5. CYTOXAN [Suspect]
     Active Substance: CYCLOPHOSPHAMIDE
     Indication: LUNG TRANSPLANT
     Dosage: 25 MILLIGRAM, DAILY
     Route: 065
     Dates: start: 2005

REACTIONS (10)
  - Mental status changes [Unknown]
  - Sepsis [Unknown]
  - Fatigue [Unknown]
  - Pyrexia [Unknown]
  - Asthenia [Unknown]
  - Areflexia [Unknown]
  - Off label use [Unknown]
  - Paralysis [Unknown]
  - West Nile viral infection [Fatal]
  - Malaise [Unknown]

NARRATIVE: CASE EVENT DATE: 2005
